FAERS Safety Report 10459876 (Version 1)
Quarter: 2014Q3

REPORT INFORMATION
  Report Type: Spontaneous
  Country: DZ (occurrence: DZ)
  Receive Date: 20140917
  Receipt Date: 20140917
  Transmission Date: 20150326
  Serious: Yes (Other)
  Sender: FDA-Public Use
  Company Number: DZ-BAXTER-2014BAX054046

PATIENT
  Age: 66 Year
  Sex: Female

DRUGS (2)
  1. CAPD FORMULA 55 C DIALYSE SOL 2L [Suspect]
     Active Substance: CALCIUM CHLORIDE\DEXTROSE MONOHYDRATE\MAGNESIUM CHLORIDE\SODIUM CHLORIDE\SODIUM LACTATE
     Indication: DIABETES MELLITUS
  2. CAPD FORMULA 55 C DIALYSE SOL 2L [Suspect]
     Active Substance: CALCIUM CHLORIDE\DEXTROSE MONOHYDRATE\MAGNESIUM CHLORIDE\SODIUM CHLORIDE\SODIUM LACTATE
     Indication: RENAL FAILURE CHRONIC
     Dosage: 04 BAGS
     Route: 033
     Dates: start: 20140618

REACTIONS (3)
  - Palpatory finding abnormal [Unknown]
  - Peritoneal cloudy effluent [Unknown]
  - Pyrexia [Unknown]

NARRATIVE: CASE EVENT DATE: 20140829
